FAERS Safety Report 14849016 (Version 1)
Quarter: 2018Q2

REPORT INFORMATION
  Report Type: Not Available
  Country: US (occurrence: US)
  Receive Date: 20180504
  Receipt Date: 20180504
  Transmission Date: 20180711
  Serious: Yes (Life-Threatening)
  Sender: FDA-Public Use
  Company Number: US-IHEALTH-2018-US-006769

PATIENT
  Sex: 0

DRUGS (1)
  1. AZO YEAST [Suspect]
     Active Substance: EUPATORIUM PERFOLIATUM FLOWERING TOP\VISCUM ALBUM LEAF
     Route: 048

REACTIONS (1)
  - Anaphylactic reaction [Unknown]
